FAERS Safety Report 15282765 (Version 1)
Quarter: 2018Q3

REPORT INFORMATION
  Report Type: Spontaneous
  Country: PL (occurrence: PL)
  Receive Date: 20180816
  Receipt Date: 20180816
  Transmission Date: 20181010
  Serious: Yes (Hospitalization, Other)
  Sender: FDA-Public Use
  Company Number: PL-MERCK KGAA-2053792

PATIENT
  Sex: Female

DRUGS (2)
  1. NOVOTHYROX [Suspect]
     Active Substance: LEVOTHYROXINE SODIUM
     Indication: PRODUCT USED FOR UNKNOWN INDICATION
  2. NOVOTHYROX [Suspect]
     Active Substance: LEVOTHYROXINE SODIUM

REACTIONS (4)
  - Blood thyroid stimulating hormone abnormal [None]
  - Anti-thyroid antibody positive [None]
  - Hyperthyroidism [Not Recovered/Not Resolved]
  - Maternal exposure timing unspecified [None]
